FAERS Safety Report 7301813-9 (Version None)
Quarter: 2011Q1

REPORT INFORMATION
  Report Type: 
  Country: None (occurrence: None)
  Receive Date: 20110218
  Receipt Date: 20110211
  Transmission Date: 20110831
  Serious: Yes (Hospitalization)
  Sender: FDA-Public Use
  Company Number: B0700378A

PATIENT
  Age: 35 Year
  Sex: Female

DRUGS (2)
  1. AVANDAMET [Suspect]
     Indication: DIABETES MELLITUS
     Route: 048
     Dates: start: 20050701, end: 20051201
  2. AVANDIA [Suspect]
     Indication: DIABETES MELLITUS
     Route: 048
     Dates: start: 20040201, end: 20090101

REACTIONS (3)
  - MYOCARDIAL ISCHAEMIA [None]
  - AMNESIA [None]
  - CEREBROVASCULAR ACCIDENT [None]
